FAERS Safety Report 8106246-3 (Version None)
Quarter: 2012Q1

REPORT INFORMATION
  Report Type: 
  Country: None (occurrence: None)
  Receive Date: 20120130
  Receipt Date: 20120119
  Transmission Date: 20120608
  Serious: Yes (Hospitalization)
  Sender: FDA-Public Use
  Company Number: 2012SP003615

PATIENT
  Sex: Female

DRUGS (1)
  1. NUVARING [Suspect]
     Indication: PRODUCT USED FOR UNKNOWN INDICATION

REACTIONS (5)
  - INADEQUATE ANALGESIA [None]
  - PAIN IN EXTREMITY [None]
  - BURNING SENSATION [None]
  - PARAESTHESIA [None]
  - MUSCLE CONTRACTURE [None]
